FAERS Safety Report 22045867 (Version 2)
Quarter: 2023Q1

REPORT INFORMATION
  Report Type: Spontaneous
  Country: US (occurrence: US)
  Receive Date: 20230228
  Receipt Date: 20230316
  Transmission Date: 20230417
  Serious: Yes (Hospitalization, Other)
  Sender: FDA-Public Use
  Company Number: US-BRISTOL-MYERS SQUIBB COMPANY-2023-027514

PATIENT
  Age: 71 Year
  Sex: Male
  Weight: 58.97 kg

DRUGS (1)
  1. REVLIMID [Suspect]
     Active Substance: LENALIDOMIDE
     Indication: Myelodysplastic syndrome
     Dosage: 1 CAP BY MOUTH DAILY
     Route: 048
     Dates: start: 20221101

REACTIONS (4)
  - Pneumonia [Unknown]
  - Sepsis [Unknown]
  - Neutropenia [Unknown]
  - Thrombocytopenia [Unknown]
